FAERS Safety Report 9784589 (Version 1)
Quarter: 2013Q4

REPORT INFORMATION
  Report Type: Spontaneous
  Country: US (occurrence: US)
  Receive Date: 20131226
  Receipt Date: 20131226
  Transmission Date: 20140711
  Serious: Yes (Other)
  Sender: FDA-Public Use
  Company Number: US-ACTAVIS-2013-23173

PATIENT
  Age: 19 Month
  Sex: Female

DRUGS (8)
  1. OXYMETAZOLINE HYDROCHLORIDE [Suspect]
     Indication: VASOCONSTRICTION
     Dosage: 2 PUFFS DURING CYCLES 2 AND 3
     Route: 045
  2. DIPHENHYDRAMINE (WATSON LABORATORIES) [Interacting]
     Indication: ALLERGY PROPHYLAXIS
     Dosage: 10 MG, SINGLE
     Route: 042
  3. ALBUTEROL SULFATE (AMALLC) [Interacting]
     Indication: PROPHYLAXIS
     Dosage: 180 ?G, SINGLE
     Route: 045
  4. PHENYLEPHRINE [Interacting]
     Indication: OPHTHALMOLOGICAL EXAMINATION
     Dosage: 1 DROP TO EACH EYE, 2 ADMINISTRATIONS, 15 MINUTES APPART
     Route: 031
  5. HYDROCORTISONE [Concomitant]
     Indication: ALLERGY PROPHYLAXIS
     Dosage: 10 MG, SINGLE
     Route: 042
  6. MELPHALAN [Concomitant]
     Indication: RETINOBLASTOMA
     Dosage: 3 MG/ INFUSION/ CYCLE, 4 CYCLES
     Route: 013
  7. HEPARIN [Concomitant]
     Indication: PRODUCT USED FOR UNKNOWN INDICATION
     Dosage: 75 U/KG
     Route: 042
  8. ASPIRIN [Concomitant]
     Indication: THROMBOSIS PROPHYLAXIS
     Dosage: 10 MG/KG, SINGLE
     Route: 065

REACTIONS (3)
  - Cerebral vasoconstriction [Recovered/Resolved]
  - Hypertension [Recovered/Resolved]
  - Potentiating drug interaction [Recovered/Resolved]
